FAERS Safety Report 23185132 (Version 2)
Quarter: 2024Q1

REPORT INFORMATION
  Report Type: Report from Study
  Country: US (occurrence: US)
  Receive Date: 20231115
  Receipt Date: 20240112
  Transmission Date: 20240409
  Serious: No
  Sender: FDA-Public Use
  Company Number: US-002147023-NVSC2023US243081

PATIENT
  Age: 51 Year
  Sex: Female

DRUGS (1)
  1. KESIMPTA [Suspect]
     Active Substance: OFATUMUMAB
     Indication: Multiple sclerosis
     Dosage: UNK
     Route: 058
     Dates: start: 20231103

REACTIONS (10)
  - Ear discomfort [Unknown]
  - Influenza like illness [Unknown]
  - Headache [Unknown]
  - Nasopharyngitis [Unknown]
  - Diarrhoea [Unknown]
  - Chills [Unknown]
  - Pyrexia [Unknown]
  - Pain [Unknown]
  - Vomiting [Unknown]
  - Tinnitus [Unknown]

NARRATIVE: CASE EVENT DATE: 20231103
